FAERS Safety Report 12583736 (Version 2)
Quarter: 2016Q4

REPORT INFORMATION
  Report Type: Spontaneous
  Country: US (occurrence: US)
  Receive Date: 20160722
  Receipt Date: 20161106
  Transmission Date: 20170207
  Serious: Yes (Hospitalization, Other)
  Sender: FDA-Public Use
  Company Number: US-ASTRAZENECA-2016SE77888

PATIENT
  Age: 30553 Day
  Sex: Female
  Weight: 54.4 kg

DRUGS (20)
  1. XGEVA [Concomitant]
     Active Substance: DENOSUMAB
  2. FASLODEX [Suspect]
     Active Substance: FULVESTRANT
     Dosage: INJECTED 7 DAYS WHEN NOT ON IBRANCE
     Route: 030
  3. SYNTHROID [Concomitant]
     Active Substance: LEVOTHYROXINE SODIUM
  4. PROBIOTICS [Concomitant]
     Active Substance: PROBIOTICS NOS
  5. TRAZODONE [Concomitant]
     Active Substance: TRAZODONE HYDROCHLORIDE
  6. TAMOXIFEN [Suspect]
     Active Substance: TAMOXIFEN
     Route: 048
  7. LASIX [Concomitant]
     Active Substance: FUROSEMIDE
     Indication: BLOOD PRESSURE ABNORMAL
  8. XANAX [Concomitant]
     Active Substance: ALPRAZOLAM
     Indication: ANXIETY
     Dosage: 0.25MG AS REQUIRED
  9. CARDIZEM CD [Concomitant]
     Active Substance: DILTIAZEM HYDROCHLORIDE
  10. ZESTRIL [Suspect]
     Active Substance: LISINOPRIL
     Route: 048
  11. PRILOSEC [Suspect]
     Active Substance: OMEPRAZOLE MAGNESIUM
     Dosage: 40.0MG UNKNOWN
     Route: 048
  12. IBRANCE [Suspect]
     Active Substance: PALBOCICLIB
     Indication: BREAST CANCER METASTATIC
     Dosage: 125MG TABLETS BY MOUTH FOR 21 DAYS ON 7 DAYS OFF
     Route: 048
  13. ZOCOR [Concomitant]
     Active Substance: SIMVASTATIN
  14. NUCYNTA ER [Concomitant]
     Active Substance: TAPENTADOL HYDROCHLORIDE
  15. CARAFATE [Concomitant]
     Active Substance: SUCRALFATE
     Dosage: 1.0G UNKNOWN
  16. TOPROL XL [Suspect]
     Active Substance: METOPROLOL SUCCINATE
     Dosage: 50 MG; 1 AND 1/2 TABLETS DAILY
     Route: 048
  17. ZOFRAN [Concomitant]
     Active Substance: ONDANSETRON HYDROCHLORIDE
     Dosage: 4.0MG AS REQUIRED
  18. PRISTIQ EXTENDED-RELEASE [Concomitant]
     Active Substance: DESVENLAFAXINE SUCCINATE
  19. ZANTAC [Concomitant]
     Active Substance: RANITIDINE HYDROCHLORIDE
  20. ARIMIDEX [Suspect]
     Active Substance: ANASTROZOLE
     Route: 048

REACTIONS (5)
  - Metastases to pelvis [Unknown]
  - Deep vein thrombosis [Unknown]
  - Pulmonary embolism [Unknown]
  - Metastases to liver [Unknown]
  - Malignant neoplasm progression [Unknown]

NARRATIVE: CASE EVENT DATE: 20160621
